FAERS Safety Report 7674913-1 (Version None)
Quarter: 2011Q3

REPORT INFORMATION
  Report Type: 
  Country: None (occurrence: None)
  Receive Date: 20110810
  Receipt Date: 20110727
  Transmission Date: 20111222
  Serious: Yes (Other)
  Sender: FDA-Public Use
  Company Number: JP-ELI_LILLY_AND_COMPANY-JP201108001347

PATIENT
  Age: 65 Year

DRUGS (1)
  1. CYMBALTA [Suspect]
     Indication: DEPRESSION
     Route: 048

REACTIONS (3)
  - DIZZINESS [None]
  - FRACTURE [None]
  - FALL [None]
